FAERS Safety Report 13507520 (Version 1)
Quarter: 2017Q2

REPORT INFORMATION
  Report Type: Spontaneous
  Country: US (occurrence: US)
  Receive Date: 20170502
  Receipt Date: 20170502
  Transmission Date: 20170830
  Serious: Yes (Hospitalization)
  Sender: FDA-Public Use
  Company Number: None

PATIENT
  Age: 78 Year
  Sex: Male

DRUGS (1)
  1. TASIGNA [Suspect]
     Active Substance: NILOTINIB
     Indication: CHRONIC MYELOID LEUKAEMIA
     Route: 048
     Dates: start: 20170418, end: 20170421

REACTIONS (11)
  - Decreased appetite [None]
  - Chills [None]
  - Vomiting [None]
  - Atrial fibrillation [None]
  - Dysgeusia [None]
  - Nausea [None]
  - Pyrexia [None]
  - Fatigue [None]
  - Fall [None]
  - Asthenia [None]
  - Nonspecific reaction [None]

NARRATIVE: CASE EVENT DATE: 20170420
